FAERS Safety Report 10400348 (Version 1)
Quarter: 2014Q1

REPORT INFORMATION
  Report Type: Spontaneous
  Country: US (occurrence: None)
  Receive Date: 20130815
  Receipt Date: 20130815
  Transmission Date: 20141002
  Serious: Yes (Hospitalization, Other)
  Sender: FDA-Public Use
  Company Number: ADR-2013-00576

PATIENT
  Age: 59 Year
  Sex: Male

DRUGS (4)
  1. BACLOFEN INTRATHECAL [Suspect]
     Indication: PAIN
  2. MORPHINE [Concomitant]
  3. CLONIDINE [Concomitant]
  4. DILAUDID INTRATHECAL [Concomitant]

REACTIONS (1)
  - Implant site infection [None]
